FAERS Safety Report 7783311-1 (Version None)
Quarter: 2011Q3

REPORT INFORMATION
  Report Type: 
  Country: None (occurrence: None)
  Receive Date: 20110927
  Receipt Date: 20110927
  Transmission Date: 20111222
  Serious: No
  Sender: FDA-Public Use
  Company Number: None

PATIENT
  Age: 89 Year
  Sex: Male
  Weight: 73.6 kg

DRUGS (1)
  1. INSULIN [Suspect]
     Dosage: 15 UNITS AT BEDTIME SQ
     Route: 058
     Dates: start: 20110709, end: 20110714

REACTIONS (1)
  - HYPOGLYCAEMIA [None]
